FAERS Safety Report 7496296-2 (Version None)
Quarter: 2011Q2

REPORT INFORMATION
  Report Type: 
  Country: None (occurrence: None)
  Receive Date: 20110523
  Receipt Date: 20110516
  Transmission Date: 20111010
  Serious: Yes (Congenital Anomaly, Other)
  Sender: FDA-Public Use
  Company Number: US-PFIZER INC-2011105863

PATIENT
  Sex: Female
  Weight: 4 kg

DRUGS (2)
  1. EFFEXOR XR [Suspect]
     Dosage: 150 MG, 1X/DAY
     Route: 064
     Dates: start: 20030101
  2. FIORICET [Concomitant]
     Dosage: ^50-325-40^ ONE TABLET EVERY FOUR HOURS AS NEEDED NOT TO EXCEED SIX TABLETS PER 24HRS
     Route: 064

REACTIONS (5)
  - ATRIAL SEPTAL DEFECT [None]
  - UMBILICAL CORD ABNORMALITY [None]
  - DRUG EXPOSURE DURING PREGNANCY [None]
  - PULMONARY VALVE STENOSIS [None]
  - LARGE FOR DATES BABY [None]
